FAERS Safety Report 24818177 (Version 1)
Quarter: 2025Q1

REPORT INFORMATION
  Report Type: Spontaneous
  Country: HK (occurrence: None)
  Receive Date: 20250108
  Receipt Date: 20250108
  Transmission Date: 20250409
  Serious: Yes (Life-Threatening, Hospitalization)
  Sender: CMP PHARMA
  Company Number: HK-CMPPHARMA-000450

PATIENT
  Age: 16 Year
  Sex: Female

DRUGS (1)
  1. NORLIQVA [Suspect]
     Active Substance: AMLODIPINE
     Indication: Product used for unknown indication

REACTIONS (6)
  - Intentional overdose [Unknown]
  - Lactic acidosis [Recovering/Resolving]
  - Incorrect dose administered [Unknown]
  - Shock [Recovering/Resolving]
  - Toxicity to various agents [Recovering/Resolving]
  - Suicide attempt [Unknown]
